FAERS Safety Report 19176989 (Version 2)
Quarter: 2021Q4

REPORT INFORMATION
  Report Type: Report from Study
  Country: GB (occurrence: GB)
  Receive Date: 20210424
  Receipt Date: 20211207
  Transmission Date: 20220303
  Serious: Yes (Other)
  Sender: FDA-Public Use
  Company Number: GB-NOVARTISPH-NVSC2021GB088256

PATIENT
  Sex: Male

DRUGS (1)
  1. ERELZI [Suspect]
     Active Substance: ETANERCEPT-SZZS
     Indication: Spondyloarthropathy
     Dosage: 50 MG, QW
     Route: 058

REACTIONS (5)
  - Pain [Unknown]
  - Hypokinesia [Unknown]
  - Insomnia [Unknown]
  - Product supply issue [Unknown]
  - Product use in unapproved indication [Unknown]
